FAERS Safety Report 7197945-9 (Version None)
Quarter: 2010Q4

REPORT INFORMATION
  Report Type: 
  Country: None (occurrence: None)
  Receive Date: 20101207
  Receipt Date: 20101203
  Transmission Date: 20110411
  Serious: Yes (Death)
  Sender: FDA-Public Use
  Company Number: 2010SP063042

PATIENT
  Age: 30 Year
  Sex: Male
  Weight: 62 kg

DRUGS (14)
  1. TEMODAL [Suspect]
     Indication: GLIOBLASTOMA MULTIFORME
     Dosage: SEE IMAGE
     Route: 048
     Dates: start: 20070308, end: 20070313
  2. TEMODAL [Suspect]
     Indication: GLIOBLASTOMA MULTIFORME
     Dosage: SEE IMAGE
     Route: 048
     Dates: start: 20070324, end: 20070503
  3. TEMODAL [Suspect]
     Indication: GLIOBLASTOMA MULTIFORME
     Dosage: SEE IMAGE
     Route: 048
     Dates: start: 20070601, end: 20070605
  4. TEMODAL [Suspect]
     Indication: GLIOBLASTOMA MULTIFORME
     Dosage: SEE IMAGE
     Route: 048
     Dates: start: 20070629, end: 20070703
  5. TEMODAL [Suspect]
     Indication: GLIOBLASTOMA MULTIFORME
     Dosage: SEE IMAGE
     Route: 048
     Dates: start: 20070727, end: 20070731
  6. TEMODAL [Suspect]
     Indication: GLIOBLASTOMA MULTIFORME
     Dosage: SEE IMAGE
     Route: 048
     Dates: start: 20070827, end: 20070831
  7. TEMODAL [Suspect]
     Indication: GLIOBLASTOMA MULTIFORME
     Dosage: SEE IMAGE
     Route: 048
     Dates: start: 20070927, end: 20071001
  8. TEMODAL [Suspect]
     Indication: GLIOBLASTOMA MULTIFORME
     Dosage: SEE IMAGE
     Route: 048
     Dates: start: 20071029, end: 20071102
  9. TEMODAL [Suspect]
     Indication: GLIOBLASTOMA MULTIFORME
     Dosage: SEE IMAGE
     Route: 048
     Dates: start: 20071220, end: 20071224
  10. TEMODAL [Suspect]
     Indication: GLIOBLASTOMA MULTIFORME
     Dosage: SEE IMAGE
     Route: 048
     Dates: start: 20080124, end: 20080128
  11. TEMODAL [Suspect]
     Indication: GLIOBLASTOMA MULTIFORME
     Dosage: SEE IMAGE
     Route: 048
     Dates: start: 20080221, end: 20080225
  12. MYSTAN [Concomitant]
  13. RAMELTEON [Concomitant]
  14. TOPIRAMATE [Concomitant]

REACTIONS (2)
  - GLIOBLASTOMA MULTIFORME [None]
  - MALIGNANT NEOPLASM PROGRESSION [None]
